FAERS Safety Report 24890084 (Version 5)
Quarter: 2025Q1

REPORT INFORMATION
  Report Type: Spontaneous
  Country: US (occurrence: US)
  Receive Date: 20250127
  Receipt Date: 20250320
  Transmission Date: 20250408
  Serious: No
  Sender: PFIZER
  Company Number: US-PFIZER INC-202500010411

PATIENT
  Age: 15 Year
  Sex: Male
  Weight: 45.36 kg

DRUGS (1)
  1. GENOTROPIN [Suspect]
     Active Substance: SOMATROPIN
     Indication: Growth hormone deficiency
     Dosage: 2.4 MG, DAILY, 8 O^CLOCK AT NIGHT EVERY NIGHT

REACTIONS (3)
  - Device mechanical issue [Unknown]
  - Device physical property issue [Unknown]
  - Device occlusion [Unknown]
